FAERS Safety Report 7572912-1 (Version None)
Quarter: 2011Q2

REPORT INFORMATION
  Report Type: 
  Country: None (occurrence: None)
  Receive Date: 20110627
  Receipt Date: 20110613
  Transmission Date: 20111010
  Serious: Yes (Other)
  Sender: FDA-Public Use
  Company Number: BR-ASTRAZENECA-2011SE14757

PATIENT
  Age: 77 Year
  Sex: Female
  Weight: 52 kg

DRUGS (7)
  1. ATACAND [Suspect]
     Indication: HYPERTENSION
     Route: 048
     Dates: start: 20100901, end: 20110201
  2. LEVOTHYROXINE SODIUM [Concomitant]
     Indication: THYROID DISORDER
     Route: 048
     Dates: start: 20060101
  3. DAFLON [Concomitant]
     Route: 048
     Dates: start: 20110101
  4. ATACAND [Suspect]
     Route: 048
     Dates: start: 20110201, end: 20110301
  5. DAFLON [Concomitant]
     Indication: VARICOSE VEIN
     Route: 048
     Dates: start: 20090101, end: 20100101
  6. DONAREN [Concomitant]
     Indication: OSTEOPOROSIS
     Dosage: DAILY
     Route: 048
     Dates: start: 20100101, end: 20110101
  7. ATENOLOL+CLORTALIDONE [Concomitant]
     Indication: HYPERTENSION
     Dosage: DAILY
     Route: 048
     Dates: start: 20070101

REACTIONS (4)
  - PAIN IN EXTREMITY [None]
  - MEMORY IMPAIRMENT [None]
  - DRUG INEFFECTIVE [None]
  - BLOOD PRESSURE INADEQUATELY CONTROLLED [None]
